FAERS Safety Report 9782483 (Version 1)
Quarter: 2013Q4

REPORT INFORMATION
  Report Type: Spontaneous
  Country: IN (occurrence: None)
  Receive Date: 20131220
  Receipt Date: 20131220
  Transmission Date: 20140711
  Serious: Yes (Life-Threatening)
  Sender: FDA-Public Use
  Company Number: 2013P1021894

PATIENT
  Age: 38 Year
  Sex: Female

DRUGS (3)
  1. ONDANSETRON [Suspect]
     Dosage: 4 MG ;  X1 ;   IV
     Route: 042
  2. RANITIDINE [Suspect]
     Indication: SURGICAL PRECONDITIONING
     Route: 030
  3. RANITIDINE [Suspect]
     Indication: PREMEDICATION
     Route: 030

REACTIONS (2)
  - Cardio-respiratory arrest [None]
  - Drug interaction [None]
